FAERS Safety Report 4970541-7 (Version None)
Quarter: 2006Q2

REPORT INFORMATION
  Report Type: 
  Country: None (occurrence: None)
  Receive Date: 20060412
  Receipt Date: 20050701
  Transmission Date: 20061013
  Serious: Yes (Hospitalization)
  Sender: FDA-Public Use
  Company Number: US-MERCK-0507USA00288

PATIENT
  Age: 68 Year
  Sex: Female
  Weight: 60 kg

DRUGS (1)
  1. VIOXX [Suspect]
     Indication: ARTHRITIS
     Route: 048
     Dates: start: 20010731, end: 20020101

REACTIONS (22)
  - ACUTE CORONARY SYNDROME [None]
  - ACUTE MYOCARDIAL INFARCTION [None]
  - ANAEMIA [None]
  - BACK INJURY [None]
  - BACK PAIN [None]
  - CATARACT [None]
  - CORONARY ARTERY DISEASE [None]
  - DEPRESSION [None]
  - DIARRHOEA [None]
  - DIZZINESS [None]
  - EUSTACHIAN TUBE DYSFUNCTION [None]
  - HYPERLIPIDAEMIA [None]
  - HYPERMAGNESAEMIA [None]
  - MYALGIA [None]
  - OSTEOPOROSIS [None]
  - RENAL FAILURE [None]
  - RHINITIS SEASONAL [None]
  - SCIATICA [None]
  - SINUSITIS [None]
  - SPINAL COLUMN STENOSIS [None]
  - URINARY TRACT INFECTION [None]
  - VERTIGO [None]
